FAERS Safety Report 14763632 (Version 1)
Quarter: 2018Q2

REPORT INFORMATION
  Report Type: Spontaneous
  Country: US (occurrence: US)
  Receive Date: 20180416
  Receipt Date: 20180416
  Transmission Date: 20180711
  Serious: Yes (Death, Life-Threatening, Other)
  Sender: FDA-Public Use
  Company Number: US-KITE, A GILEAD COMPANY-2045789

PATIENT
  Age: 63 Year
  Sex: Female
  Weight: 86.2 kg

DRUGS (1)
  1. YESCARTA [Suspect]
     Active Substance: AXICABTAGENE CILOLEUCEL
     Indication: DIFFUSE LARGE B-CELL LYMPHOMA
     Route: 042
     Dates: start: 20180215, end: 20180215

REACTIONS (3)
  - Neurotoxicity [Recovered/Resolved]
  - Nausea [Unknown]
  - Disease progression [Fatal]

NARRATIVE: CASE EVENT DATE: 20180218
